FAERS Safety Report 16886428 (Version 1)
Quarter: 2019Q4

REPORT INFORMATION
  Report Type: Spontaneous
  Country: US (occurrence: US)
  Receive Date: 20191004
  Receipt Date: 20191004
  Transmission Date: 20200122
  Serious: Yes (Other)
  Sender: FDA-Public Use
  Company Number: None

PATIENT
  Sex: Male

DRUGS (4)
  1. SUBOXONE [Concomitant]
     Active Substance: BUPRENORPHINE HYDROCHLORIDE\NALOXONE HYDROCHLORIDE
  2. BUPRENORPHINE/NALAXONE FILMS [Suspect]
     Active Substance: BUPRENORPHINE\NALOXONE
     Indication: DRUG DEPENDENCE
     Route: 048
     Dates: start: 20190612
  3. BUPRENORPHINE NALOXONE 8-2MG TABLETS [Suspect]
     Active Substance: BUPRENORPHINE HYDROCHLORIDE\NALOXONE HYDROCHLORIDE
     Dates: start: 20190408, end: 20190612
  4. BUPRENORPHINE - NALOXONE FILMS [Suspect]
     Active Substance: BUPRENORPHINE\NALOXONE
     Dates: start: 20190612, end: 20191004

REACTIONS (3)
  - Therapeutic product effect incomplete [None]
  - Drug dependence [None]
  - Product substitution issue [None]
